FAERS Safety Report 8168540-X (Version None)
Quarter: 2012Q1

REPORT INFORMATION
  Report Type: 
  Country: None (occurrence: None)
  Receive Date: 20120227
  Receipt Date: 20120227
  Transmission Date: 20120608
  Serious: Yes (Other)
  Sender: FDA-Public Use
  Company Number: None

PATIENT
  Age: 9 Year
  Sex: Male
  Weight: 38.555 kg

DRUGS (1)
  1. CHILDREN'S ALLERGY MELTS UP+UP [Suspect]
     Dosage: 2 MELTS
     Route: 048
     Dates: start: 20120201, end: 20120225

REACTIONS (5)
  - MIDDLE INSOMNIA [None]
  - VOMITING PROJECTILE [None]
  - MALAISE [None]
  - PRODUCT QUALITY ISSUE [None]
  - ABDOMINAL PAIN UPPER [None]
